FAERS Safety Report 6303485-9 (Version None)
Quarter: 2009Q3

REPORT INFORMATION
  Report Type: 
  Country: None (occurrence: None)
  Receive Date: 20090810
  Receipt Date: 20090804
  Transmission Date: 20100115
  Serious: Yes (Death, Hospitalization, Other)
  Sender: FDA-Public Use
  Company Number: PHHY2009GB03044

PATIENT
  Sex: Female

DRUGS (3)
  1. CLOZARIL [Suspect]
     Indication: SCHIZOPHRENIA
     Dosage: UNK
     Dates: start: 19981006
  2. CLOZARIL [Suspect]
     Dosage: 325 MG, DAILY
     Route: 048
  3. ANALGESICS [Concomitant]
     Indication: PAIN

REACTIONS (7)
  - BACK PAIN [None]
  - DEEP VEIN THROMBOSIS [None]
  - FOOT FRACTURE [None]
  - GENERAL PHYSICAL HEALTH DETERIORATION [None]
  - PARAPLEGIA [None]
  - PULMONARY EMBOLISM [None]
  - SPINAL CORD NEOPLASM [None]
